FAERS Safety Report 11473674 (Version 2)
Quarter: 2015Q3

REPORT INFORMATION
  Report Type: Report from Study
  Country: US (occurrence: US)
  Receive Date: 20150908
  Receipt Date: 20150916
  Transmission Date: 20151125
  Serious: Yes (Hospitalization)
  Sender: FDA-Public Use
  Company Number: US-ACTELION-A-NJ2015-122618

PATIENT
  Age: 70 Year
  Sex: Female

DRUGS (2)
  1. MACITENTAN [Suspect]
     Active Substance: MACITENTAN
     Indication: PULMONARY HYPERTENSION
     Dosage: 10 MG, QD
     Route: 048
     Dates: start: 20150723
  2. XARELTO [Concomitant]
     Active Substance: RIVAROXABAN

REACTIONS (6)
  - Chest pain [Unknown]
  - Musculoskeletal pain [Unknown]
  - Dyspnoea [Unknown]
  - Pulmonary oedema [Unknown]
  - Neck pain [Unknown]
  - Pulmonary arterial hypertension [Unknown]
